FAERS Safety Report 7668135-8 (Version None)
Quarter: 2011Q3

REPORT INFORMATION
  Report Type: 
  Country: None (occurrence: None)
  Receive Date: 20110808
  Receipt Date: 20110727
  Transmission Date: 20111222
  Serious: Yes (Hospitalization)
  Sender: FDA-Public Use
  Company Number: PHEH2010US02022

PATIENT
  Sex: Female
  Weight: 54.43 kg

DRUGS (10)
  1. FOLIC ACID [Concomitant]
  2. ALLOPURINOL [Concomitant]
  3. CELLCEPT [Concomitant]
  4. BONIVA [Concomitant]
  5. EXJADE [Suspect]
     Indication: THALASSAEMIA
     Dosage: 500 MG, BID
     Route: 048
     Dates: start: 20091201
  6. PREDNISONE [Concomitant]
  7. NEUPOGEN [Concomitant]
  8. EXJADE [Suspect]
     Indication: SERUM FERRITIN INCREASED
  9. PROGRAF [Concomitant]
  10. FISH OIL [Concomitant]

REACTIONS (8)
  - FULL BLOOD COUNT DECREASED [None]
  - GASTROINTESTINAL DISORDER [None]
  - DYSPEPSIA [None]
  - URINARY TRACT INFECTION [None]
  - NAUSEA [None]
  - VOMITING [None]
  - ABDOMINAL DISCOMFORT [None]
  - DIARRHOEA [None]
